FAERS Safety Report 10966363 (Version 1)
Quarter: 2015Q1

REPORT INFORMATION
  Report Type: Spontaneous
  Country: None (occurrence: None)
  Receive Date: 20150226
  Receipt Date: 20150226
  Transmission Date: 20150721
  Serious: No
  Sender: FDA-Public Use
  Company Number: TPA2010A04905

PATIENT
  Age: 83 Year
  Sex: Male
  Weight: 102.06 kg

DRUGS (13)
  1. SECTRAL (ALL OTHER THERAPEUTIC PRODUCTS) [Concomitant]
  2. METOLAZONE. [Concomitant]
     Active Substance: METOLAZONE
  3. LOSARTAN [Concomitant]
     Active Substance: LOSARTAN
  4. PREVACID [Concomitant]
     Active Substance: LANSOPRAZOLE
  5. FISH OIL [Concomitant]
     Active Substance: FISH OIL
  6. ULORIC [Suspect]
     Active Substance: FEBUXOSTAT
     Indication: GOUT
     Route: 048
     Dates: start: 20100817
  7. ZEMPLAR [Concomitant]
     Active Substance: PARICALCITOL
  8. CLOBEX SHAMPOO (ALL OTHER THERAPEUTIC PRODUCTS) [Concomitant]
  9. DIFLORASONE DIAC (DIFLORASONE DIACETATE) [Concomitant]
  10. FUROSEMIDE. [Concomitant]
     Active Substance: FUROSEMIDE
  11. CHONDR / GLUCOSAMINE (ALL OTHER THERAPEUTIC PRODUCTS) [Concomitant]
  12. NASONEX [Concomitant]
     Active Substance: MOMETASONE FUROATE
  13. VYTORIN (SIMVASTATIN, EZETIMIBE) [Concomitant]

REACTIONS (1)
  - Pruritus [None]
